FAERS Safety Report 5647295-4 (Version None)
Quarter: 2008Q1

REPORT INFORMATION
  Report Type: 
  Country: None (occurrence: None)
  Receive Date: 20080303
  Receipt Date: 20080214
  Transmission Date: 20080703
  Serious: Yes (Hospitalization)
  Sender: FDA-Public Use
  Company Number: ES-BAYER-200813432GPV

PATIENT
  Age: 65 Year
  Sex: Male

DRUGS (4)
  1. ULTRAVIST 240 MG I/ML (IOPROMIDE) [Suspect]
     Dosage: TOTAL DAILY DOSE: 110 ML
     Route: 042
     Dates: start: 20070810, end: 20070810
  2. NEOTENSIN/ ENALAPRIL [Concomitant]
     Route: 048
     Dates: start: 20040426
  3. GEMFIBROZIL [Concomitant]
     Route: 048
     Dates: start: 20070118
  4. ZOLPIDEM [Concomitant]
     Route: 048
     Dates: start: 20060214

REACTIONS (5)
  - BLOOD ALKALINE PHOSPHATASE INCREASED [None]
  - BLOOD BILIRUBIN INCREASED [None]
  - GAMMA-GLUTAMYLTRANSFERASE INCREASED [None]
  - JAUNDICE [None]
  - TRANSAMINASES INCREASED [None]
